FAERS Safety Report 13341043 (Version 2)
Quarter: 2017Q2

REPORT INFORMATION
  Report Type: Spontaneous
  Country: US (occurrence: US)
  Receive Date: 20170316
  Receipt Date: 20170421
  Transmission Date: 20170830
  Serious: No
  Sender: FDA-Public Use
  Company Number: US-ASTRAZENECA-2017SE25092

PATIENT
  Age: 55 Year
  Sex: Female
  Weight: 89.4 kg

DRUGS (4)
  1. BYDUREON [Suspect]
     Active Substance: EXENATIDE
     Indication: WEIGHT DECREASED
     Route: 058
     Dates: start: 2016
  2. BYDUREON [Suspect]
     Active Substance: EXENATIDE
     Indication: WEIGHT DECREASED
     Route: 065
     Dates: start: 2017
  3. BYDUREON [Suspect]
     Active Substance: EXENATIDE
     Indication: BLOOD GLUCOSE DECREASED
     Route: 058
     Dates: start: 2016
  4. BYDUREON [Suspect]
     Active Substance: EXENATIDE
     Indication: BLOOD GLUCOSE DECREASED
     Route: 065
     Dates: start: 2017

REACTIONS (5)
  - Dizziness [Unknown]
  - Off label use [Unknown]
  - Injection site mass [Unknown]
  - Drug dose omission [Unknown]
  - Blood glucose increased [Unknown]

NARRATIVE: CASE EVENT DATE: 2016
